FAERS Safety Report 4328017-6 (Version None)
Quarter: 2004Q1

REPORT INFORMATION
  Report Type: 
  Country: None (occurrence: None)
  Receive Date: 20040325
  Receipt Date: 20040317
  Transmission Date: 20041129
  Serious: Yes (Hospitalization)
  Sender: FDA-Public Use
  Company Number: 2004204290JP

PATIENT
  Age: 71 Year
  Sex: Female

DRUGS (4)
  1. CABERGOLINE [Suspect]
     Indication: PARKINSON'S DISEASE
     Dosage: 1 MG/DAY, ORAL
     Route: 048
     Dates: start: 20030601
  2. NEO DOPASTON [Concomitant]
  3. SYMMETREL [Concomitant]
  4. ARTANE [Concomitant]

REACTIONS (5)
  - DELIRIUM [None]
  - HALLUCINATION [None]
  - OVERDOSE [None]
  - PERSECUTORY DELUSION [None]
  - TREATMENT NONCOMPLIANCE [None]
